FAERS Safety Report 4862840-4 (Version None)
Quarter: 2005Q4

REPORT INFORMATION
  Report Type: 
  Country: None (occurrence: None)
  Receive Date: 20051221
  Receipt Date: 20050812
  Transmission Date: 20060501
  Serious: Yes (Death, Life-Threatening, Hospitalization)
  Sender: FDA-Public Use
  Company Number: PHHO2005JP12794

PATIENT
  Age: 85 Year
  Sex: Female
  Weight: 56 kg

DRUGS (5)
  1. ZYLORIC [Concomitant]
     Dates: end: 20040829
  2. LASIX [Concomitant]
     Indication: CARDIAC FAILURE
     Dates: start: 20030530, end: 20040829
  3. PERSANTIN-L [Concomitant]
     Dates: start: 20030530, end: 20040829
  4. TANATRIL [Concomitant]
     Dates: start: 20030711, end: 20040829
  5. DIOVAN [Suspect]
     Indication: HYPERTENSION
     Dosage: 40 MG, QD
     Dates: start: 20030613, end: 20040829

REACTIONS (11)
  - APHASIA [None]
  - CARDIAC FAILURE CHRONIC [None]
  - CARDIAC PACEMAKER INSERTION [None]
  - CEREBRAL INFARCTION [None]
  - CONDITION AGGRAVATED [None]
  - DEPRESSED LEVEL OF CONSCIOUSNESS [None]
  - DYSARTHRIA [None]
  - DYSPNOEA [None]
  - PLEURAL EFFUSION [None]
  - QUADRIPLEGIA [None]
  - SINUS BRADYCARDIA [None]
